FAERS Safety Report 14482747 (Version 2)
Quarter: 2018Q1

REPORT INFORMATION
  Report Type: Other
  Country: GB (occurrence: GB)
  Receive Date: 20180203
  Receipt Date: 20180320
  Transmission Date: 20180509
  Serious: Yes (Other)
  Sender: FDA-Public Use
  Company Number: GB-GLENMARK PHARMACEUTICALS-2018GMK031365

PATIENT

DRUGS (1)
  1. CITALOPRAM HYDROBROMIDE. [Suspect]
     Active Substance: CITALOPRAM HYDROBROMIDE
     Indication: DEPRESSION
     Dosage: 20 MG, UNK
     Route: 048
     Dates: start: 20160916

REACTIONS (14)
  - Pain in jaw [Unknown]
  - Somnolence [Recovering/Resolving]
  - Anorgasmia [Recovered/Resolved]
  - Mood swings [Unknown]
  - Irritability [Unknown]
  - Abnormal dreams [Not Recovered/Not Resolved]
  - Muscle twitching [Recovering/Resolving]
  - Dizziness [Recovering/Resolving]
  - Increased appetite [Recovering/Resolving]
  - Anxiety [Recovering/Resolving]
  - Trismus [Unknown]
  - Bruxism [Not Recovered/Not Resolved]
  - Temporomandibular joint syndrome [Unknown]
  - Insomnia [Recovering/Resolving]
